FAERS Safety Report 18526789 (Version 1)
Quarter: 2020Q4

REPORT INFORMATION
  Report Type: Spontaneous
  Country: ME (occurrence: ME)
  Receive Date: 20201120
  Receipt Date: 20201120
  Transmission Date: 20210114
  Serious: Yes (Life-Threatening, Hospitalization, Other)
  Sender: FDA-Public Use
  Company Number: ME-NOVOPROD-758050

PATIENT
  Age: 73 Year
  Sex: Female
  Weight: 95 kg

DRUGS (5)
  1. GLUCOPHAGE [Concomitant]
     Active Substance: METFORMIN HYDROCHLORIDE
     Indication: TYPE 2 DIABETES MELLITUS
     Dosage: 1X1 TABLET DAILY,
     Route: 065
     Dates: start: 2017, end: 2020
  2. LEVEMIR [Suspect]
     Active Substance: INSULIN DETEMIR
     Indication: TYPE 2 DIABETES MELLITUS
     Dosage: 20 IU, QD
     Route: 058
     Dates: start: 2017, end: 20200909
  3. DIAPREL [Suspect]
     Active Substance: GLICLAZIDE
     Indication: TYPE 2 DIABETES MELLITUS
     Dosage: 1 TABLET DAILLY
     Route: 065
     Dates: start: 2017, end: 2020
  4. DIAPREL [Suspect]
     Active Substance: GLICLAZIDE
     Dosage: UNK
  5. PREXANIL COMBI HD [Concomitant]
     Indication: HYPERTENSION
     Dosage: 1X1
     Route: 065

REACTIONS (2)
  - Hypoglycaemic unconsciousness [Recovered/Resolved with Sequelae]
  - Cerebral infarction [Unknown]

NARRATIVE: CASE EVENT DATE: 202009
